FAERS Safety Report 8270106-8 (Version None)
Quarter: 2012Q2

REPORT INFORMATION
  Report Type: 
  Country: None (occurrence: None)
  Receive Date: 20120410
  Receipt Date: 20120402
  Transmission Date: 20120825
  Serious: Yes (Other)
  Sender: FDA-Public Use
  Company Number: PHFR2012GB002053

PATIENT
  Sex: Female

DRUGS (2)
  1. CLOZARIL [Suspect]
     Indication: SCHIZOPHRENIA
     Route: 048
     Dates: start: 20040112
  2. CLOZARIL [Suspect]
     Dosage: 600 MG, QD (OD)

REACTIONS (4)
  - SOMNOLENCE [None]
  - ASTHMA [None]
  - HYPOXIA [None]
  - INFECTION [None]
